FAERS Safety Report 9383651 (Version 2)
Quarter: 2013Q3

REPORT INFORMATION
  Report Type: Spontaneous
  Country: ES (occurrence: ES)
  Receive Date: 20130704
  Receipt Date: 20130705
  Transmission Date: 20140515
  Serious: Yes (Death, Other)
  Sender: FDA-Public Use
  Company Number: ES-ASTRAZENECA-2013SE50056

PATIENT
  Age: 41 Year
  Sex: Female
  Weight: 45 kg

DRUGS (1)
  1. CAPRELSA [Suspect]
     Indication: MEDULLARY THYROID CANCER
     Route: 048
     Dates: start: 20111028, end: 20130424

REACTIONS (2)
  - Guillain-Barre syndrome [Fatal]
  - Pneumonia [Unknown]
